FAERS Safety Report 18908358 (Version 1)
Quarter: 2021Q1

REPORT INFORMATION
  Report Type: Spontaneous
  Country: CN (occurrence: CN)
  Receive Date: 20210218
  Receipt Date: 20210218
  Transmission Date: 20210420
  Serious: Yes (Hospitalization, Other)
  Sender: FDA-Public Use
  Company Number: CN-INFO-001177

PATIENT
  Age: 45 Year
  Sex: Female

DRUGS (4)
  1. BUPIVACAINE 0.5% [Suspect]
     Active Substance: BUPIVACAINE
     Indication: SPINAL ANAESTHESIA
     Dosage: HYPERBARIC FORM
     Route: 037
  2. ROPIVACAINE. [Suspect]
     Active Substance: ROPIVACAINE HYDROCHLORIDE
     Indication: EPIDURAL ANALGESIA
     Route: 008
  3. EPHEDRINE. [Concomitant]
     Active Substance: EPHEDRINE
     Indication: HYPOTENSION
     Route: 065
  4. FENTANYL. [Concomitant]
     Active Substance: FENTANYL
     Indication: EPIDURAL ANALGESIA
     Dosage: INFUSED AT A BASAL RATE OF 2ML/HOUR
     Route: 008

REACTIONS (2)
  - Vocal cord paralysis [Recovering/Resolving]
  - Cauda equina syndrome [Recovering/Resolving]
